FAERS Safety Report 10142025 (Version 1)
Quarter: 2014Q2

REPORT INFORMATION
  Report Type: Report from Study
  Country: US (occurrence: US)
  Receive Date: 20140429
  Receipt Date: 20140429
  Transmission Date: 20141212
  Serious: No
  Sender: FDA-Public Use
  Company Number: US-ABBVIE-13P-163-1083341-00

PATIENT
  Sex: Female
  Weight: 130.3 kg

DRUGS (1)
  1. CREON [Suspect]
     Indication: PANCREATIC DISORDER
     Dosage: WITH MEALS
     Dates: start: 2012

REACTIONS (1)
  - Inappropriate schedule of drug administration [Not Recovered/Not Resolved]
